FAERS Safety Report 8133529-3 (Version None)
Quarter: 2012Q1

REPORT INFORMATION
  Report Type: 
  Country: None (occurrence: None)
  Receive Date: 20120213
  Receipt Date: 20120208
  Transmission Date: 20120608
  Serious: Yes (Other)
  Sender: FDA-Public Use
  Company Number: US-PFIZER INC-2012014299

PATIENT
  Sex: Female
  Weight: 49.887 kg

DRUGS (10)
  1. LIPITOR [Suspect]
     Indication: HYPERCHOLESTEROLAEMIA
  2. LIPITOR [Suspect]
     Indication: BLOOD CHOLESTEROL INCREASED
     Dosage: 10 MG, DAILY IN THE EVENING
     Route: 048
     Dates: start: 19991022
  3. CALCIUM [Concomitant]
     Dosage: UNK
  4. VICODIN [Concomitant]
  5. FIORINAL [Concomitant]
  6. CELEBREX [Concomitant]
  7. TAMOXIFEN CITRATE [Concomitant]
  8. DONEPEZIL HCL [Suspect]
     Indication: DEMENTIA ALZHEIMER'S TYPE
     Dosage: UNK
  9. IRON [Concomitant]
     Dosage: UNK
  10. FOSAMAX [Concomitant]

REACTIONS (5)
  - WEIGHT DECREASED [None]
  - CHOLELITHIASIS [None]
  - DEMENTIA ALZHEIMER'S TYPE [None]
  - ABDOMINAL DISCOMFORT [None]
  - NAUSEA [None]
